FAERS Safety Report 8610222-1 (Version None)
Quarter: 2012Q3

REPORT INFORMATION
  Report Type: 
  Country: None (occurrence: None)
  Receive Date: 20120822
  Receipt Date: 20120706
  Transmission Date: 20120928
  Serious: No
  Sender: FDA-Public Use
  Company Number: US-009507513-1207USA002111

PATIENT

DRUGS (3)
  1. RIBAVIRIN [Suspect]
     Dosage: UNK
  2. VICTRELIS [Suspect]
     Indication: HEPATITIS C
     Dosage: 800 MG, TID
     Route: 048
     Dates: start: 20120502
  3. PEGASYS [Suspect]
     Dosage: UNK

REACTIONS (1)
  - TREATMENT FAILURE [None]
